FAERS Safety Report 11809214 (Version 3)
Quarter: 2016Q3

REPORT INFORMATION
  Report Type: Report from Study
  Country: US (occurrence: US)
  Receive Date: 20151207
  Receipt Date: 20160809
  Transmission Date: 20161109
  Serious: No
  Sender: FDA-Public Use
  Company Number: US-AMGEN-USASP2015128988

PATIENT
  Age: 52 Year
  Sex: Female

DRUGS (1)
  1. ENBREL [Suspect]
     Active Substance: ETANERCEPT
     Indication: RHEUMATOID ARTHRITIS
     Dosage: 25 MG, 2 TIMES/WK
     Route: 065
     Dates: start: 1996

REACTIONS (10)
  - Somnolence [Unknown]
  - Therapeutic response decreased [Unknown]
  - Condition aggravated [Unknown]
  - Pain in extremity [Unknown]
  - Hypertension [Unknown]
  - Impaired work ability [Unknown]
  - Depression [Unknown]
  - Blood cholesterol increased [Unknown]
  - Arthritis [Unknown]
  - Musculoskeletal disorder [Unknown]
